FAERS Safety Report 12148031 (Version 1)
Quarter: 2016Q1

REPORT INFORMATION
  Report Type: Spontaneous
  Country: US (occurrence: US)
  Receive Date: 20160304
  Receipt Date: 20160304
  Transmission Date: 20160526
  Serious: No
  Sender: FDA-Public Use
  Company Number: US-BAYER-2016-043265

PATIENT
  Age: 81 Year
  Sex: Female

DRUGS (3)
  1. COQ10 [Concomitant]
     Active Substance: UBIDECARENONE
  2. ALEVE [Suspect]
     Active Substance: NAPROXEN SODIUM
     Indication: ARTHRITIS
     Dosage: 1 DF, ONCE
     Route: 048
     Dates: start: 20160301, end: 20160301
  3. CENTRUM SILVER [Concomitant]
     Active Substance: MINERALS\VITAMINS

REACTIONS (3)
  - Glossodynia [None]
  - Product use issue [None]
  - Oral discomfort [Recovered/Resolved]

NARRATIVE: CASE EVENT DATE: 20160301
